FAERS Safety Report 5937531-9 (Version None)
Quarter: 2008Q4

REPORT INFORMATION
  Report Type: 
  Country: None (occurrence: None)
  Receive Date: 20081021
  Receipt Date: 20080327
  Transmission Date: 20090506
  Serious: Yes (Other)
  Sender: FDA-Public Use
  Company Number: HQWYE309326NOV03

PATIENT
  Age: 50 Year
  Sex: Female

DRUGS (5)
  1. PREMARIN [Suspect]
     Indication: HORMONE REPLACEMENT THERAPY
     Dosage: DAILY, ORAL
     Route: 048
  2. CYCRIN [Suspect]
  3. ESTRACE [Suspect]
  4. PREMPRO [Suspect]
  5. PROVERA [Suspect]

REACTIONS (2)
  - BREAST CANCER FEMALE [None]
  - BREAST NEOPLASM [None]
